FAERS Safety Report 23596705 (Version 1)
Quarter: 2024Q1

REPORT INFORMATION
  Report Type: Report from Study
  Country: US (occurrence: US)
  Receive Date: 20240305
  Receipt Date: 20240305
  Transmission Date: 20240410
  Serious: No
  Sender: FDA-Public Use
  Company Number: US-BIOVITRUM-2024-US-003311

PATIENT
  Age: 51 Year
  Sex: Female

DRUGS (1)
  1. KINERET [Suspect]
     Active Substance: ANAKINRA
     Indication: Rheumatoid arthritis
     Dosage: DAILY
     Route: 058
     Dates: start: 20240209, end: 20240223

REACTIONS (6)
  - Swelling [Unknown]
  - Pain [Unknown]
  - Pigmentation disorder [Unknown]
  - Inflammation [Unknown]
  - Urticaria [Unknown]
  - Pruritus [Unknown]
